FAERS Safety Report 5438033-9 (Version None)
Quarter: 2007Q3

REPORT INFORMATION
  Report Type: 
  Country: None (occurrence: None)
  Receive Date: 20070831
  Receipt Date: 20070822
  Transmission Date: 20080115
  Serious: Yes (Hospitalization)
  Sender: FDA-Public Use
  Company Number: AT-SANOFI-SYNTHELABO-A01200709311

PATIENT
  Age: 33 Year
  Sex: Male

DRUGS (4)
  1. HUMINSULIN BASAL [Concomitant]
     Indication: DIABETES MELLITUS
     Dosage: UNK
     Route: 058
  2. HUMALOG [Concomitant]
     Indication: DIABETES MELLITUS
     Dosage: UNK
     Route: 058
  3. IVADAL [Suspect]
     Indication: SLEEP DISORDER
     Route: 048
     Dates: start: 20060309, end: 20060309
  4. IVADAL [Suspect]
     Route: 048
     Dates: start: 20060311, end: 20060311

REACTIONS (2)
  - HYPERHIDROSIS [None]
  - HYPOGLYCAEMIA [None]
